FAERS Safety Report 10523769 (Version 2)
Quarter: 2014Q4

REPORT INFORMATION
  Report Type: Spontaneous
  Country: IT (occurrence: IT)
  Receive Date: 20141017
  Receipt Date: 20141017
  Transmission Date: 20150528
  Serious: Yes (Other)
  Sender: FDA-Public Use
  Company Number: IT-AUROBINDO-AUR-APL-2014-07799

PATIENT
  Age: 46 Year
  Sex: Female

DRUGS (2)
  1. VOLTFAST                           /00372302/ [Suspect]
     Active Substance: DICLOFENAC SODIUM
     Indication: TENDERNESS
     Dosage: 100 MG, DAILY
     Route: 048
     Dates: start: 20131213, end: 20131215
  2. AMOXICILLIN. [Suspect]
     Active Substance: AMOXICILLIN
     Indication: ANTIBIOTIC PROPHYLAXIS
     Dosage: 2 G, DAILY
     Route: 048
     Dates: start: 20131204, end: 20131215

REACTIONS (2)
  - Urticaria [Recovering/Resolving]
  - Angioedema [Recovering/Resolving]

NARRATIVE: CASE EVENT DATE: 20131215
